FAERS Safety Report 6201049-9 (Version None)
Quarter: 2009Q2

REPORT INFORMATION
  Report Type: 
  Country: None (occurrence: None)
  Receive Date: 20090526
  Receipt Date: 20090518
  Transmission Date: 20091009
  Serious: Yes (Other)
  Sender: FDA-Public Use
  Company Number: FR-BRISTOL-MYERS SQUIBB COMPANY-14627939

PATIENT
  Age: 51 Year
  Sex: Female

DRUGS (4)
  1. CETUXIMAB [Suspect]
     Indication: COLORECTAL CANCER STAGE IV
  2. CETUXIMAB [Suspect]
     Indication: METASTASES TO LIVER
  3. OXALIPLATIN [Suspect]
     Indication: COLORECTAL CANCER STAGE IV
  4. OXALIPLATIN [Suspect]
     Indication: METASTASES TO LIVER

REACTIONS (2)
  - PORTAL VENOUS GAS [None]
  - TUMOUR NECROSIS [None]
